FAERS Safety Report 14647147 (Version 3)
Quarter: 2018Q2

REPORT INFORMATION
  Report Type: Report from Study
  Country: CN (occurrence: CN)
  Receive Date: 20180316
  Receipt Date: 20180416
  Transmission Date: 20180711
  Serious: Yes (Death, Hospitalization, Other)
  Sender: FDA-Public Use
  Company Number: PHHY2018CN044682

PATIENT
  Age: 13 Year
  Sex: Male

DRUGS (3)
  1. EXJADE [Suspect]
     Active Substance: DEFERASIROX
     Indication: THALASSAEMIA BETA
     Dosage: 870 MG, QD
     Route: 048
     Dates: start: 20140421
  2. BIFENDATE [Concomitant]
     Active Substance: BIFENDATE
     Indication: PRODUCT USED FOR UNKNOWN INDICATION
     Route: 065
  3. CALCIUM [Concomitant]
     Active Substance: CALCIUM
     Indication: PRODUCT USED FOR UNKNOWN INDICATION
     Route: 065

REACTIONS (16)
  - Pneumonia [Unknown]
  - Congestive cardiomyopathy [Unknown]
  - Lung infection [Recovering/Resolving]
  - Respiratory failure [Fatal]
  - Arrhythmia [Unknown]
  - Coagulopathy [Unknown]
  - Iron overload [Unknown]
  - Atrophy [Not Recovered/Not Resolved]
  - Hypoalbuminaemia [Unknown]
  - Abdominal distension [Unknown]
  - Cardiac failure [Unknown]
  - Electrolyte imbalance [Unknown]
  - Circulatory collapse [Fatal]
  - Panic reaction [Unknown]
  - Chest discomfort [Unknown]
  - Condition aggravated [Unknown]

NARRATIVE: CASE EVENT DATE: 20180220
